FAERS Safety Report 21580525 (Version 4)
Quarter: 2025Q1

REPORT INFORMATION
  Report Type: Spontaneous
  Country: US (occurrence: US)
  Receive Date: 20221110
  Receipt Date: 20250127
  Transmission Date: 20250409
  Serious: No
  Sender: SANOFI AVENTIS
  Company Number: US-SA-SAC20221104000907

PATIENT
  Age: 30 Year
  Sex: Male

DRUGS (6)
  1. DUPIXENT [Suspect]
     Active Substance: DUPILUMAB
     Indication: Dermatitis
     Route: 058
     Dates: start: 20221104, end: 20221104
  2. DUPIXENT [Suspect]
     Active Substance: DUPILUMAB
     Dosage: 300 MG, QOW
     Route: 058
     Dates: start: 2022
  3. CLOBETASOL [Concomitant]
     Active Substance: CLOBETASOL
  4. ONDANSETRON [Concomitant]
     Active Substance: ONDANSETRON
  5. OXYCODONE [Concomitant]
     Active Substance: OXYCODONE
  6. CHLORHEXIDINE GLUCONATE [Concomitant]
     Active Substance: CHLORHEXIDINE GLUCONATE

REACTIONS (8)
  - Injection site swelling [Unknown]
  - Injection site erythema [Unknown]
  - Dermatitis [Unknown]
  - Discomfort [Unknown]
  - Rash [Unknown]
  - Sleep disorder due to a general medical condition [Not Recovered/Not Resolved]
  - Drug ineffective for unapproved indication [Unknown]
  - Product dose omission in error [Unknown]
